FAERS Safety Report 20960132 (Version 1)
Quarter: 2022Q2

REPORT INFORMATION
  Report Type: Spontaneous
  Country: JP (occurrence: JP)
  Receive Date: 20220615
  Receipt Date: 20220615
  Transmission Date: 20220721
  Serious: Yes (Other)
  Sender: FDA-Public Use
  Company Number: JP-DSJP-DSJ-2022-115603

PATIENT
  Age: 59 Year
  Sex: Female

DRUGS (7)
  1. DENOSUMAB [Suspect]
     Active Substance: DENOSUMAB
     Indication: Metastases to bone
     Dosage: 120 MILLIGRAM
     Route: 041
     Dates: start: 20210421, end: 20210922
  2. DENOSUMAB [Suspect]
     Active Substance: DENOSUMAB
     Dosage: 120 MILLIGRAM
     Route: 041
     Dates: start: 20211124
  3. CALCIUM ASPARTATE [Suspect]
     Active Substance: CALCIUM ASPARTATE
     Indication: Mineral supplementation
     Dosage: 200 MG, BID
     Route: 048
     Dates: start: 20210512, end: 20210609
  4. CALCIUM ASPARTATE [Suspect]
     Active Substance: CALCIUM ASPARTATE
     Dosage: 200 MG, BID
     Route: 048
     Dates: start: 20210825, end: 20220415
  5. ALFACALCIDOL [Suspect]
     Active Substance: ALFACALCIDOL
     Indication: Mineral supplementation
     Dosage: 0.25 UG, QD
     Route: 048
     Dates: start: 20210812, end: 20220415
  6. PERJETA [Concomitant]
     Active Substance: PERTUZUMAB
     Indication: Breast cancer
     Dosage: 840 MG
     Route: 041
     Dates: start: 20200923
  7. HERCEPTIN [Concomitant]
     Active Substance: TRASTUZUMAB
     Indication: Breast cancer
     Dosage: 535.5 MG
     Route: 041
     Dates: start: 20200923

REACTIONS (2)
  - Hypercalcaemia [Recovered/Resolved]
  - Hypocalcaemia [Recovered/Resolved]

NARRATIVE: CASE EVENT DATE: 20210922
